FAERS Safety Report 7914238-X (Version None)
Quarter: 2011Q4

REPORT INFORMATION
  Report Type: 
  Country: None (occurrence: None)
  Receive Date: 20111115
  Receipt Date: 20111104
  Transmission Date: 20120403
  Serious: Yes (Other)
  Sender: FDA-Public Use
  Company Number: FR-BAXTER-2011BH035339

PATIENT
  Age: 65 Year
  Sex: Male

DRUGS (1)
  1. CEFEPIME [Suspect]
     Indication: MEDIASTINITIS
     Route: 065

REACTIONS (2)
  - RENAL FAILURE [None]
  - NEUROTOXICITY [None]
